FAERS Safety Report 5571747-9 (Version None)
Quarter: 2007Q4

REPORT INFORMATION
  Report Type: 
  Country: None (occurrence: None)
  Receive Date: 20071221
  Receipt Date: 20071214
  Transmission Date: 20080405
  Serious: Yes (Other)
  Sender: FDA-Public Use
  Company Number: B0438459A

PATIENT
  Age: 61 Year
  Sex: Male
  Weight: 109 kg

DRUGS (5)
  1. AVANDIA [Suspect]
     Dosage: 8MG PER DAY
     Route: 048
     Dates: start: 20060306, end: 20060605
  2. GLUCOVANCE [Concomitant]
     Route: 065
     Dates: start: 20050501
  3. DIASTABOL [Concomitant]
     Route: 065
     Dates: start: 20060306
  4. COTAREG [Concomitant]
     Route: 065
  5. FENOFIBRATE [Concomitant]
     Route: 065

REACTIONS (2)
  - CONDITION AGGRAVATED [None]
  - HYPERTRIGLYCERIDAEMIA [None]
